FAERS Safety Report 4522962-4 (Version None)
Quarter: 2004Q4

REPORT INFORMATION
  Report Type: 
  Country: None (occurrence: None)
  Receive Date: 20041210
  Receipt Date: 20041130
  Transmission Date: 20050328
  Serious: Yes (Other)
  Sender: FDA-Public Use
  Company Number: NL-JNJFOC-20041201077

PATIENT

DRUGS (1)
  1. INFLIXIMAB [Suspect]
     Indication: UVEITIS
     Route: 042

REACTIONS (1)
  - TUBERCULOSIS [None]
